FAERS Safety Report 9984139 (Version 2)
Quarter: 2014Q1

REPORT INFORMATION
  Report Type: Report from Study
  Country: US (occurrence: US)
  Receive Date: 20140307
  Receipt Date: 20140307
  Transmission Date: 20141002
  Serious: No
  Sender: FDA-Public Use
  Company Number: US-ABBVIE-13P-163-1174547-00

PATIENT
  Age: 59 Year
  Sex: Female

DRUGS (19)
  1. HUMIRA [Suspect]
     Indication: CROHN^S DISEASE
     Dates: start: 20131116, end: 20131116
  2. HUMIRA [Suspect]
     Dates: start: 20131130, end: 20131130
  3. LEVOXYL [Concomitant]
     Indication: HYPOTHYROIDISM
  4. LEVOXYL [Concomitant]
     Indication: THYROIDECTOMY
  5. GLIPIZIDE [Concomitant]
     Indication: DIABETES MELLITUS
  6. LISINOPRIL [Concomitant]
     Indication: HYPERTENSION
  7. VITAMIN B [Concomitant]
     Indication: PRODUCT USED FOR UNKNOWN INDICATION
  8. VITAMIN D [Concomitant]
     Indication: PRODUCT USED FOR UNKNOWN INDICATION
  9. UNKNOWN MEDICATION [Concomitant]
     Indication: THYROID DISORDER
  10. MULTIVITAMINS [Concomitant]
     Indication: PRODUCT USED FOR UNKNOWN INDICATION
  11. ASACOL HD [Concomitant]
     Indication: CROHN^S DISEASE
  12. B-COMPLEX [Concomitant]
     Indication: PRODUCT USED FOR UNKNOWN INDICATION
  13. GLIPIZIDE W/METFORMIN [Concomitant]
     Indication: DIABETES MELLITUS
     Dosage: 2.5MG-250 MG
  14. HYDROXYCHLOROQUINE [Concomitant]
     Indication: PRODUCT USED FOR UNKNOWN INDICATION
  15. RED YEAST RICE [Concomitant]
     Indication: HYPERCHOLESTEROLAEMIA
  16. STRESS RELIEF FIZ [Concomitant]
     Indication: PRODUCT USED FOR UNKNOWN INDICATION
  17. VITAMIN D3 [Concomitant]
     Indication: PRODUCT USED FOR UNKNOWN INDICATION
  18. SUPER OMEGA 3 [Concomitant]
     Indication: PRODUCT USED FOR UNKNOWN INDICATION
  19. TEMAZEPAM [Concomitant]
     Indication: PRODUCT USED FOR UNKNOWN INDICATION

REACTIONS (7)
  - Systemic lupus erythematosus [Unknown]
  - Joint swelling [Unknown]
  - Pruritus [Not Recovered/Not Resolved]
  - Urticaria [Not Recovered/Not Resolved]
  - Dermatitis allergic [Recovering/Resolving]
  - Injection site erythema [Not Recovered/Not Resolved]
  - Hypersensitivity [Unknown]
